FAERS Safety Report 5977420-7 (Version None)
Quarter: 2008Q4

REPORT INFORMATION
  Report Type: 
  Country: None (occurrence: None)
  Receive Date: 20081201
  Receipt Date: 20081201
  Transmission Date: 20090506
  Serious: Yes (Other)
  Sender: FDA-Public Use
  Company Number: None

PATIENT
  Sex: Female
  Weight: 83.4619 kg

DRUGS (4)
  1. SEROQUEL [Suspect]
     Indication: DEPRESSION
     Dosage: 1 TABLET AT BEDTIME PO
     Route: 048
     Dates: start: 20080926, end: 20081030
  2. SEROQUEL [Suspect]
     Indication: FIBROMYALGIA
     Dosage: 1 TABLET AT BEDTIME PO
     Route: 048
     Dates: start: 20080926, end: 20081030
  3. SEROQUEL [Suspect]
     Indication: INSOMNIA
     Dosage: 1 TABLET AT BEDTIME PO
     Route: 048
     Dates: start: 20080926, end: 20081030
  4. SEROQUEL [Suspect]
     Indication: MUSCLE SPASMS
     Dosage: 1 TABLET AT BEDTIME PO
     Route: 048
     Dates: start: 20080926, end: 20081030

REACTIONS (2)
  - MUSCULAR WEAKNESS [None]
  - TARDIVE DYSKINESIA [None]
